FAERS Safety Report 22203236 (Version 5)
Quarter: 2023Q2

REPORT INFORMATION
  Report Type: Spontaneous
  Country: CH (occurrence: CH)
  Receive Date: 20230412
  Receipt Date: 20230516
  Transmission Date: 20230721
  Serious: Yes (Other)
  Sender: FDA-Public Use
  Company Number: CH-APIL-2311057US

PATIENT
  Sex: Female
  Weight: 60 kg

DRUGS (3)
  1. VISTABEL [Suspect]
     Active Substance: BOTULINUM TOXIN TYPE A
     Indication: Skin wrinkling
     Dosage: 16 UNITS, SINGLE
     Dates: start: 20230329, end: 20230329
  2. VISTABEL [Suspect]
     Active Substance: BOTULINUM TOXIN TYPE A
     Indication: Mephisto sign
     Dosage: 1 UNITS, SINGLE
     Dates: start: 20230329, end: 20230329
  3. VISTABEL [Suspect]
     Active Substance: BOTULINUM TOXIN TYPE A
     Indication: Skin wrinkling
     Dosage: UNK, SINGLE
     Dates: start: 202212, end: 202212

REACTIONS (4)
  - Sudden hearing loss [Unknown]
  - Deafness unilateral [Recovering/Resolving]
  - COVID-19 [Unknown]
  - Tinnitus [Unknown]

NARRATIVE: CASE EVENT DATE: 20230401
